FAERS Safety Report 6322764-2 (Version None)
Quarter: 2009Q3

REPORT INFORMATION
  Report Type: 
  Country: None (occurrence: None)
  Receive Date: 20090824
  Receipt Date: 20090309
  Transmission Date: 20100115
  Serious: No
  Sender: FDA-Public Use
  Company Number: US-ABBOTT-09P-163-0561593-00

PATIENT
  Sex: Female

DRUGS (23)
  1. NIASPAN [Suspect]
     Indication: BLOOD CHOLESTEROL INCREASED
     Dosage: DAILY AT BEDTIME
     Route: 048
     Dates: end: 20090317
  2. NIASPAN [Suspect]
     Dates: start: 20090319
  3. AZOR [Concomitant]
     Indication: DRUG USE FOR UNKNOWN INDICATION
  4. SPIRONOLACTONE [Concomitant]
     Indication: DRUG USE FOR UNKNOWN INDICATION
  5. AMITRIPTYLINE [Concomitant]
     Indication: DRUG USE FOR UNKNOWN INDICATION
  6. PIROXICAM-B [Concomitant]
     Indication: DRUG USE FOR UNKNOWN INDICATION
  7. NEXIUM [Concomitant]
     Indication: DRUG USE FOR UNKNOWN INDICATION
  8. HEXOPHENADINE [Concomitant]
     Indication: DRUG USE FOR UNKNOWN INDICATION
  9. PRISTIQ [Concomitant]
     Indication: DRUG USE FOR UNKNOWN INDICATION
  10. TOPAMAX [Concomitant]
     Indication: DRUG USE FOR UNKNOWN INDICATION
  11. CYCLOBENZAPRINE [Concomitant]
     Indication: DRUG USE FOR UNKNOWN INDICATION
  12. NULEV [Concomitant]
     Indication: DRUG USE FOR UNKNOWN INDICATION
  13. LUNESTA [Concomitant]
     Indication: DRUG USE FOR UNKNOWN INDICATION
  14. CPAP [Concomitant]
     Indication: DRUG USE FOR UNKNOWN INDICATION
  15. VIT B12 [Concomitant]
     Indication: DRUG USE FOR UNKNOWN INDICATION
     Route: 050
     Dates: end: 20090223
  16. HYOSCYAMINE [Concomitant]
     Indication: DRUG USE FOR UNKNOWN INDICATION
  17. LEXAPRO [Concomitant]
     Indication: DRUG USE FOR UNKNOWN INDICATION
  18. BACLOFEN [Concomitant]
     Indication: DRUG USE FOR UNKNOWN INDICATION
  19. CARISOPRODOLOL [Concomitant]
     Indication: DRUG USE FOR UNKNOWN INDICATION
  20. FEXOFENADINE [Concomitant]
     Indication: DRUG USE FOR UNKNOWN INDICATION
  21. PAROXETINE HCL [Concomitant]
     Indication: DRUG USE FOR UNKNOWN INDICATION
  22. ANTIVERT [Concomitant]
     Indication: DRUG USE FOR UNKNOWN INDICATION
  23. DIHYDROCODEINE BITARTRATE INJ [Concomitant]
     Indication: DRUG USE FOR UNKNOWN INDICATION
     Route: 048

REACTIONS (4)
  - FLUSHING [None]
  - GENERALISED ERYTHEMA [None]
  - SKIN BURNING SENSATION [None]
  - SKIN DISCOLOURATION [None]
